FAERS Safety Report 9657074 (Version 2)
Quarter: 2013Q4

REPORT INFORMATION
  Report Type: Report from Study
  Country: DE (occurrence: DE)
  Receive Date: 20131030
  Receipt Date: 20131030
  Transmission Date: 20140711
  Serious: Yes (Hospitalization, Other)
  Sender: FDA-Public Use
  Company Number: DE-ABBVIE-12P-062-0951784-00

PATIENT
  Sex: Male

DRUGS (3)
  1. HUMIRA [Suspect]
     Indication: ANKYLOSING SPONDYLITIS
     Route: 058
     Dates: start: 20090101, end: 20120622
  2. HUMIRA [Suspect]
     Route: 058
     Dates: start: 20131018
  3. CORTISON [Concomitant]

REACTIONS (2)
  - Jaw cyst [Unknown]
  - Sinusitis [Unknown]
